FAERS Safety Report 5729873-7 (Version None)
Quarter: 2008Q2

REPORT INFORMATION
  Report Type: 
  Country: None (occurrence: None)
  Receive Date: 20080502
  Receipt Date: 20080430
  Transmission Date: 20081010
  Serious: Yes (Other)
  Sender: FDA-Public Use
  Company Number: A0725752A

PATIENT
  Age: 80 Year
  Sex: Male

DRUGS (3)
  1. ALGINIC ACID + ALUMINIUM HYDROXIDE + MAGNESIUM CARBONATE TAB (ALGIN.AC [Suspect]
     Indication: DRUG USE FOR UNKNOWN INDICATION
  2. PANTOPRAZOLE (FORMULATION UNKNOWN) (PANTOPRAZOLE) [Suspect]
  3. FLECAINIDE ACETATE [Suspect]
     Indication: DRUG USE FOR UNKNOWN INDICATION

REACTIONS (2)
  - ATRIAL FIBRILLATION [None]
  - DRUG INTERACTION [None]
